FAERS Safety Report 24967775 (Version 1)
Quarter: 2025Q1

REPORT INFORMATION
  Report Type: Report from Study
  Country: CA (occurrence: CA)
  Receive Date: 20250214
  Receipt Date: 20250214
  Transmission Date: 20250408
  Serious: Yes (Other)
  Sender: ABBVIE
  Company Number: CA-ABBVIE-6129689

PATIENT
  Age: 42 Year
  Sex: Male

DRUGS (1)
  1. SKYRIZI [Suspect]
     Active Substance: RISANKIZUMAB-RZAA
     Indication: Psoriasis
     Route: 058

REACTIONS (3)
  - Deep vein thrombosis [Recovered/Resolved]
  - Injection site haemorrhage [Unknown]
  - Injection site swelling [Unknown]

NARRATIVE: CASE EVENT DATE: 20241201
